FAERS Safety Report 5307958-7 (Version None)
Quarter: 2007Q2

REPORT INFORMATION
  Report Type: 
  Country: None (occurrence: None)
  Receive Date: 20070426
  Receipt Date: 20070413
  Transmission Date: 20071010
  Serious: Yes (Other)
  Sender: FDA-Public Use
  Company Number: 2006AP06041

PATIENT
  Age: 20224 Day
  Sex: Male
  Weight: 46 kg

DRUGS (17)
  1. IRESSA [Suspect]
     Indication: LUNG ADENOCARCINOMA
     Route: 048
     Dates: start: 20061117, end: 20061119
  2. RADIOTHERAPY [Concomitant]
     Dosage: 66 GY
     Dates: start: 20050509, end: 20050509
  3. KN-3B [Concomitant]
     Indication: FLUID REPLACEMENT
     Route: 041
     Dates: start: 20061116, end: 20061120
  4. KN-3B [Concomitant]
     Route: 041
     Dates: start: 20061121
  5. GLYCEOL [Concomitant]
     Route: 041
     Dates: start: 20061116, end: 20061117
  6. DECADRON [Concomitant]
     Route: 041
     Dates: start: 20061116, end: 20061117
  7. OXYCONTIN [Concomitant]
     Indication: CANCER PAIN
     Route: 048
     Dates: start: 20061116, end: 20061119
  8. MUCOSTA [Concomitant]
     Indication: GASTRITIS
     Route: 048
     Dates: start: 20061117, end: 20061119
  9. PRIMPERAN INJ [Concomitant]
     Indication: MENINGISM
     Route: 042
     Dates: start: 20061118
  10. PREDNISOLONE [Concomitant]
     Indication: RADIATION PNEUMONITIS
     Route: 048
     Dates: start: 20060101, end: 20061205
  11. MOBIC [Concomitant]
     Indication: CANCER PAIN
     Route: 048
     Dates: end: 20061119
  12. GASTER [Concomitant]
     Indication: GASTRIC ULCER
     Route: 048
     Dates: end: 20061119
  13. LIPOVAS [Concomitant]
     Indication: HYPERLIPIDAEMIA
     Route: 048
     Dates: end: 20061119
  14. CISPLATIN [Concomitant]
     Dosage: 1 COURSE
     Dates: start: 20050408, end: 20050408
  15. CISPLATIN [Concomitant]
     Dosage: 3 COURSES
     Dates: start: 20050506, end: 20050708
  16. DOCETAXEL [Concomitant]
     Dosage: 1 COURSE
     Dates: start: 20050408, end: 20050408
  17. DOCETAXEL [Concomitant]
     Dosage: 3 COURSES
     Dates: start: 20050506, end: 20050708

REACTIONS (1)
  - INTERSTITIAL LUNG DISEASE [None]
